FAERS Safety Report 4617792-9 (Version None)
Quarter: 2005Q1

REPORT INFORMATION
  Report Type: 
  Country: None (occurrence: None)
  Receive Date: 20050324
  Receipt Date: 20050315
  Transmission Date: 20050727
  Serious: Yes (Other)
  Sender: FDA-Public Use
  Company Number: US-JNJFOC-20050304254

PATIENT
  Sex: Male

DRUGS (4)
  1. MOTRIN [Suspect]
     Route: 049
  2. MOTRIN [Suspect]
     Indication: PAIN
     Dosage: 200 MG, Q4-6H, PRN, PO
     Route: 049
  3. ENDOCET [Concomitant]
  4. ENDOCET [Concomitant]

REACTIONS (3)
  - AUTISM [None]
  - DRUG EXPOSURE VIA BREAST MILK [None]
  - SPEECH DISORDER [None]
